FAERS Safety Report 4492025-5 (Version None)
Quarter: 2004Q4

REPORT INFORMATION
  Report Type: 
  Country: None (occurrence: None)
  Receive Date: 20041029
  Receipt Date: 20041020
  Transmission Date: 20050328
  Serious: Yes (Hospitalization, Other)
  Sender: FDA-Public Use
  Company Number: HQWYE906920OCT04

PATIENT
  Age: 80 Year
  Sex: Female

DRUGS (9)
  1. INIPOMP (PANTOPRAZOLE, TABLET, DELAYED RELEASE) [Suspect]
     Dosage: 1 DOSAGE FORM 1X PER 1 DAY
     Route: 048
     Dates: end: 20040909
  2. ANAFRANIL [Suspect]
     Dosage: 60 MG 1X PER 1 DAY
     Route: 048
     Dates: end: 20040909
  3. BETASERC (BETAHISTINE HYDROCHLORIDE,  ) [Suspect]
     Dosage: SOME DOSE FORM SOMETIMES
     Route: 048
     Dates: end: 20040909
  4. DIOSMIL (DIOSMIN, ) [Suspect]
     Dosage: 600 MG 1X PER 1 DAY
     Route: 048
     Dates: end: 20040909
  5. IMOVANE (ZOPICLONE,   ) [Suspect]
     Dosage: 1 DOSAGE FORM 1X PER 1 DAY
     Route: 048
     Dates: end: 20040909
  6. ASPIRIN [Suspect]
     Dosage: 1 DOSAGE FORM 1X PER 1 DAY
     Route: 048
     Dates: end: 20040909
  7. RYTHMOL [Suspect]
     Route: 048
     Dates: end: 20040909
  8. RYTHMOL [Suspect]
     Route: 048
     Dates: start: 20040101
  9. TAHOR (SIMVASTATIN,  ) [Suspect]
     Dosage: SOME DOSE FORM SOMETIMES
     Route: 048
     Dates: end: 20040909

REACTIONS (2)
  - CONFUSIONAL STATE [None]
  - HYPONATRAEMIA [None]
